FAERS Safety Report 11485151 (Version 3)
Quarter: 2015Q3

REPORT INFORMATION
  Report Type: Spontaneous
  Country: JP (occurrence: JP)
  Receive Date: 20150909
  Receipt Date: 20150929
  Transmission Date: 20151125
  Serious: Yes (Hospitalization, Other)
  Sender: FDA-Public Use
  Company Number: JP-GSKJP-JP2015JPN118611AA

PATIENT
  Age: 87 Year
  Sex: Female
  Weight: 52 kg

DRUGS (14)
  1. VALTREX [Suspect]
     Active Substance: VALACYCLOVIR HYDROCHLORIDE
     Indication: HERPES ZOSTER
     Dosage: 1500 MG, 1D
     Route: 048
     Dates: start: 20150810, end: 20150811
  2. AMLODIN OD [Concomitant]
     Active Substance: AMLODIPINE BESYLATE
     Dosage: 5 MG, QD
  3. VIDARABINE [Concomitant]
     Active Substance: VIDARABINE
     Dosage: UNK
  4. EPADEL S [Concomitant]
     Active Substance: ETHYL ICOSAPENTATE\ICOSAPENT
     Dosage: 900 MG, BID
  5. BAYASPIRIN [Concomitant]
     Active Substance: ASPIRIN
     Dosage: 100 MG, QD
  6. JUVELA N [Concomitant]
     Active Substance: TOCOPHERYL NICOTINATE, D-.ALPHA.
     Dosage: 200 MG, BID
  7. METHYCOBAL [Concomitant]
     Active Substance: METHYLCOBALAMIN
     Dosage: 1.5 MG, 1D
  8. PARIET [Concomitant]
     Active Substance: RABEPRAZOLE SODIUM
     Dosage: 10 MG, QD
  9. FAMVIR [Suspect]
     Active Substance: FAMCICLOVIR
     Indication: HERPES ZOSTER
     Dosage: 1500 MG, 1D
     Route: 048
     Dates: start: 20150805, end: 20150809
  10. LENDORMIN D [Concomitant]
     Active Substance: BROTIZOLAM
     Dosage: 0.25 MG, QD
  11. VESICARE OD [Concomitant]
     Dosage: 5 MG, BID
  12. LOXOPROFEN SODIUM HYDRATE [Concomitant]
     Active Substance: LOXOPROFEN SODIUM DIHYDRATE
     Dosage: 180 MG, 1D
  13. AZILVA [Concomitant]
     Active Substance: AZILSARTAN KAMEDOXOMIL
     Dosage: 40 MG, QD
  14. MAGLAX [Concomitant]
     Active Substance: MAGNESIUM OXIDE
     Dosage: 500 MG, BID

REACTIONS (7)
  - Aortic aneurysm [Unknown]
  - Renal disorder [Recovered/Resolved]
  - Dysarthria [Recovered/Resolved]
  - Gait disturbance [Recovered/Resolved]
  - Urine output decreased [Recovered/Resolved]
  - Mental disorder [Recovered/Resolved]
  - Encephalopathy [Recovered/Resolved]

NARRATIVE: CASE EVENT DATE: 20150811
